FAERS Safety Report 7577248-0 (Version None)
Quarter: 2011Q2

REPORT INFORMATION
  Report Type: 
  Country: None (occurrence: None)
  Receive Date: 20110628
  Receipt Date: 20110606
  Transmission Date: 20111010
  Serious: Yes (Other)
  Sender: FDA-Public Use
  Company Number: US-BAYER-2011-025334

PATIENT
  Age: 37 Year
  Sex: Female
  Weight: 58.957 kg

DRUGS (11)
  1. FLECAINIDE ACETATE [Concomitant]
     Dosage: 75 MG, QD
     Route: 048
  2. TORADOL [Concomitant]
     Dosage: UNK
     Route: 041
     Dates: start: 20081008, end: 20081008
  3. YAZ [Suspect]
     Indication: POLYCYSTIC OVARIES
     Dosage: 1 DF, QD
     Route: 048
     Dates: start: 19990101, end: 20080101
  4. DROSPIRENONE AND ETHINYL ESTRADIOL [Suspect]
     Indication: POLYCYSTIC OVARIES
     Dosage: 1 DF, QD
     Route: 048
     Dates: start: 19990101, end: 20080101
  5. MACROBID [Concomitant]
     Indication: URINARY TRACT INFECTION
  6. FLORINEF [Concomitant]
     Dosage: TWICE DAILY
     Route: 048
  7. MULTI-VITAMINS [Concomitant]
  8. YASMIN [Suspect]
     Indication: POLYCYSTIC OVARIES
     Dosage: 1 DF, QD
     Route: 048
     Dates: start: 19990101, end: 20091103
  9. ELMIRON [Concomitant]
     Dosage: UNK UNK, BID
     Route: 048
  10. NORPACE [Concomitant]
  11. INDERAL [Concomitant]

REACTIONS (4)
  - CYSTITIS INTERSTITIAL [None]
  - SUPRAVENTRICULAR TACHYCARDIA [None]
  - CHOLECYSTITIS CHRONIC [None]
  - CHOLELITHIASIS [None]
